FAERS Safety Report 11081225 (Version 1)
Quarter: 2015Q2

REPORT INFORMATION
  Report Type: Spontaneous
  Country: US (occurrence: None)
  Receive Date: 20150424
  Receipt Date: 20150424
  Transmission Date: 20150821
  Serious: Yes (Other)
  Sender: FDA-Public Use
  Company Number: TPA2013A07222

PATIENT
  Age: 54 Year
  Sex: Male
  Weight: 53 kg

DRUGS (3)
  1. OMONTYS [Suspect]
     Active Substance: PEGINESATIDE
     Dates: start: 201207, end: 201211
  2. EPOGEN [Suspect]
     Active Substance: ERYTHROPOIETIN
     Indication: CHRONIC KIDNEY DISEASE
     Dosage: 1000
     Route: 042
     Dates: start: 20090909
  3. VITAMIN B12 [Concomitant]
     Active Substance: CYANOCOBALAMIN

REACTIONS (3)
  - Drug ineffective [None]
  - Therapeutic response decreased [None]
  - Haemoglobin decreased [None]

NARRATIVE: CASE EVENT DATE: 201202
